FAERS Safety Report 24266723 (Version 1)
Quarter: 2024Q3

REPORT INFORMATION
  Report Type: Spontaneous
  Country: FR (occurrence: FR)
  Receive Date: 20240830
  Receipt Date: 20240830
  Transmission Date: 20241017
  Serious: Yes (Other)
  Sender: BAXTER
  Company Number: None

PATIENT
  Age: 31 Year
  Sex: Female

DRUGS (57)
  1. SCOPOLAMINE [Suspect]
     Active Substance: SCOPOLAMINE
     Indication: Salivary hypersecretion
     Dosage: 1 DF (DOSAGE TEXT: 1 PATCH / 72H) (DURATION: 19 DAYS)
     Route: 062
     Dates: start: 20240629, end: 20240718
  2. NALOXEGOL OXALATE [Suspect]
     Active Substance: NALOXEGOL OXALATE
     Indication: Constipation
     Dosage: (12,5 MG) (DOSAGE TEXT : 25 MG/D)
     Route: 048
     Dates: start: 20240705, end: 20240718
  3. NALOXEGOL OXALATE [Suspect]
     Active Substance: NALOXEGOL OXALATE
     Dosage: (DOSAGE TEXT : 25 MG/D)
     Route: 048
     Dates: start: 20240605, end: 20240614
  4. NALOXEGOL OXALATE [Suspect]
     Active Substance: NALOXEGOL OXALATE
     Dosage: (DOSAGE TEXT : 12.5 MG/D)
     Route: 048
     Dates: start: 20240405, end: 20240605
  5. SKENAN [Suspect]
     Active Substance: MORPHINE SULFATE
     Indication: Pain
     Dosage: SUSTAINED-RELEASE MICROGRANULES IN CAPSULE FORM (DOSAGE TEXT : 10 MG/D) (DURATION: 33 DAYS )
     Route: 048
     Dates: start: 20240610, end: 20240613
  6. SKENAN [Suspect]
     Active Substance: MORPHINE SULFATE
     Dosage: SUSTAINED-RELEASE MICROGRANULES IN CAPSULE FORM (DOSAGE TEXT : 40 MG/D) (DURATION: 10 DAYS)
     Route: 048
     Dates: start: 20240514, end: 20240524
  7. SKENAN [Suspect]
     Active Substance: MORPHINE SULFATE
     Dosage: SUSTAINED-RELEASE MICROGRANULES IN CAPSULE FORM (DOSAGE TEXT: 15 MG/D) (DURATION: 1 DAY)
     Route: 048
     Dates: start: 20240610, end: 20240610
  8. SKENAN [Suspect]
     Active Substance: MORPHINE SULFATE
     Dosage: SUSTAINED-RELEASE MICROGRANULES IN CAPSULE FORM (DOSAGE TEXT : 20 MG/D) (DURATION: 17 DAYS)
     Route: 048
     Dates: start: 20240524, end: 20240610
  9. DUPHALAC [Suspect]
     Active Substance: LACTULOSE
     Indication: Constipation
     Dosage: ORAL POWDER OR FOR RECTAL SOLUTION IN SACHET, 3 DF (DOSAGE TEXT: 3 SACHETS/D) (DURATION: 10 DAYS)
     Route: 048
     Dates: start: 20240322, end: 20240401
  10. DUPHALAC [Suspect]
     Active Substance: LACTULOSE
     Dosage: ORAL POWDER OR FOR RECTAL SOLUTION IN SACHET, 3 DF (DOSAGE TEXT : 3 SACHETS/D) (DURATION: 60 DAYS)
     Route: 048
     Dates: start: 20240405, end: 20240604
  11. DUPHALAC [Suspect]
     Active Substance: LACTULOSE
     Dosage: ORAL POWDER OR FOR RECTAL SOLUTION IN SACHET, 1 DF, 1 SACHET IF NECESSARY (DURATION: 1 DAY)
     Route: 048
     Dates: start: 20240404, end: 20240405
  12. DUPHALAC [Suspect]
     Active Substance: LACTULOSE
     Dosage: ORAL POWDER OR FOR RECTAL SOLUTION IN SACHET, 2 DF (DOSAGE TEXT : 2 SACHETS /D)
     Route: 048
     Dates: start: 20240627
  13. MOVICOL [Suspect]
     Active Substance: POLYETHYLENE GLYCOL 3350\POTASSIUM CHLORIDE\SODIUM BICARBONATE\SODIUM CHLORIDE
     Indication: Constipation
     Dosage: POWDER FOR ORAL SOLUTION IN SACHET, 2 DF (DOSAGE TEXT: 2 SACHETS/D) (DURATION: 1 DAY)
     Route: 048
     Dates: start: 20240604, end: 20240626
  14. MOVICOL [Suspect]
     Active Substance: POLYETHYLENE GLYCOL 3350\POTASSIUM CHLORIDE\SODIUM BICARBONATE\SODIUM CHLORIDE
     Dosage: POWDER FOR ORAL SOLUTION IN SACHET, 2 DF (DOSAGE TEXT: 2 SACHETS/D) (DURATION: 1 DAY)
     Route: 048
     Dates: start: 20240130, end: 20240226
  15. MOVICOL [Suspect]
     Active Substance: POLYETHYLENE GLYCOL 3350\POTASSIUM CHLORIDE\SODIUM BICARBONATE\SODIUM CHLORIDE
     Dosage: POWDER FOR ORAL SOLUTION IN SACHET, 2 DF (DOSAGE TEXT: 2 SACHETS/D) (DURATION: 1 DAY)
     Route: 048
     Dates: start: 20240119, end: 20240122
  16. MOVICOL [Suspect]
     Active Substance: POLYETHYLENE GLYCOL 3350\POTASSIUM CHLORIDE\SODIUM BICARBONATE\SODIUM CHLORIDE
     Dosage: POWDER FOR ORAL SOLUTION IN SACHET, 4 DF (DOSAGE TEXT: 4 SACHETS/D) (DURATION: 1 DAY)
     Route: 048
     Dates: start: 20240626, end: 20240627
  17. MOVICOL [Suspect]
     Active Substance: POLYETHYLENE GLYCOL 3350\POTASSIUM CHLORIDE\SODIUM BICARBONATE\SODIUM CHLORIDE
     Dosage: POWDER FOR ORAL SOLUTION IN SACHET, 1 DF (DOSAGE TEXT: 1 SACHETS/D) (DURATION: 1 DAY)
     Route: 048
     Dates: start: 20240115, end: 20240119
  18. CYAMEMAZINE [Suspect]
     Active Substance: CYAMEMAZINE
     Indication: Psychotic disorder
     Dosage: (DOSAGE TEXT: 30 MG IF NECESSARY) (DURATION: 50 DAYS)
     Route: 048
     Dates: start: 20240322, end: 20240511
  19. CYAMEMAZINE [Suspect]
     Active Substance: CYAMEMAZINE
     Dosage: (DOSAGE TEXT: 100 MG/D) (DURATION: 3 DAYS)
     Route: 048
     Dates: start: 20240708, end: 20240711
  20. CYAMEMAZINE [Suspect]
     Active Substance: CYAMEMAZINE
     Dosage: (DOSAGE TEXT : 200 MG/D) (DURATION: 58 DAYS)
     Route: 048
     Dates: start: 20240511, end: 20240708
  21. CYAMEMAZINE [Suspect]
     Active Substance: CYAMEMAZINE
     Dosage: (DOSAGE TEXT : 50 MG/D) (DURATION: 70 DAYS)
     Route: 048
     Dates: start: 20240112, end: 20240322
  22. CYAMEMAZINE [Suspect]
     Active Substance: CYAMEMAZINE
     Dosage: (DOSAGE TEXT : 250 MG/D) (DURATION: 8 DAYS)
     Route: 048
     Dates: start: 20240104, end: 20240112
  23. FLUPENTIXOL [Suspect]
     Active Substance: FLUPENTIXOL
     Indication: Psychotic disorder
     Dosage: 4 PERCENT, ORAL SOLUTION, DROPS (DOSAGE TEXT: 120 MG/D) (DURATION: 1 DAY)
     Route: 048
     Dates: start: 20240704, end: 20240704
  24. FLUPENTIXOL [Suspect]
     Active Substance: FLUPENTIXOL
     Dosage: 4 PERCENT, ORAL SOLUTION, DROPS (DOSAGE TEXT: 100 MG/D) (DURATION: 10 DAYS)
     Route: 048
     Dates: start: 20240624, end: 20240704
  25. FLUPENTIXOL [Suspect]
     Active Substance: FLUPENTIXOL
     Dosage: 4 PERCENT, ORAL SOLUTION, DROPS (DOSAGE TEXT: 100 MG/D) (DURATION: 14 DAYS)
     Route: 048
     Dates: start: 20240704, end: 20240718
  26. FLUPENTIXOL [Suspect]
     Active Substance: FLUPENTIXOL
     Dosage: 4 PERCENT, ORAL SOLUTION, DROPS (DOSAGE TEXT : 60 MG/D) (DURATION: 13 DAYS)
     Route: 048
     Dates: start: 20240529, end: 20240611
  27. FLUPENTIXOL [Suspect]
     Active Substance: FLUPENTIXOL
     Dosage: 4 PERCENT, ORAL SOLUTION, DROPS (DOSAGE TEXT : 80 MG/D) (DURATION: 13 DAYS)
     Route: 048
     Dates: start: 20240611, end: 20240624
  28. FLUPENTIXOL [Suspect]
     Active Substance: FLUPENTIXOL
     Dosage: 4 PERCENT, ORAL SOLUTION, DROPS (DOSAGE TEXT: 30 MG/D) (DURATION: 14 DAYS)
     Route: 048
     Dates: start: 20240515, end: 20240529
  29. GABAPENTIN [Suspect]
     Active Substance: GABAPENTIN
     Indication: Neuralgia
     Dosage: (DOSAGE TEXT : 2400 MG/D)
     Route: 048
     Dates: start: 20240619
  30. GABAPENTIN [Suspect]
     Active Substance: GABAPENTIN
     Dosage: (DOSAGE TEXT: 300 MG/D) (DURATION: 3 DAYS)
     Route: 048
     Dates: start: 20240213, end: 20240216
  31. GABAPENTIN [Suspect]
     Active Substance: GABAPENTIN
     Dosage: (DOSAGE TEXT: 600 MG/D) (DURATION: 5 DAYS)
     Route: 048
     Dates: start: 20240216, end: 20240221
  32. GABAPENTIN [Suspect]
     Active Substance: GABAPENTIN
     Dosage: (DOSAGE TEXT: 1200 MG/D) (DURATION: 35 DAYS)
     Route: 048
     Dates: start: 20240301, end: 20240405
  33. GABAPENTIN [Suspect]
     Active Substance: GABAPENTIN
     Dosage: (DOSAGE TEXT : 1500 MG/D) (DURATION: 20 DAYS)
     Route: 048
     Dates: start: 20240405, end: 20240425
  34. GABAPENTIN [Suspect]
     Active Substance: GABAPENTIN
     Dosage: (DOSAGE TEXT : 900 MG/D) (DURATION: 9 DAYS)
     Route: 048
     Dates: start: 20240221, end: 20240301
  35. GABAPENTIN [Suspect]
     Active Substance: GABAPENTIN
     Dosage: (DOSAGE TEXT: 1800 MG/D) (DURATION: 55 DAYS)
     Route: 048
     Dates: start: 20240425, end: 20240619
  36. IMOVANE [Suspect]
     Active Substance: ZOPICLONE
     Indication: Insomnia
     Dosage: SCORED, 7.5 MG (DOSAGE TEXT: CP/D) (DURATION: 1 DAY)
     Route: 048
     Dates: start: 20240511, end: 20240511
  37. IMOVANE [Suspect]
     Active Substance: ZOPICLONE
     Dosage: SCORED 3.75 MG (DOSAGE TEXT : 1/2 PC IF NECESSARY)
     Route: 048
     Dates: start: 20240614
  38. CLOZAPINE [Suspect]
     Active Substance: CLOZAPINE
     Indication: Schizophrenia
     Dosage: (DOSAGE TEXT: 200 MG/D) (DURATION: 98 DAYS)
     Route: 048
     Dates: start: 20240119, end: 20240426
  39. CLOZAPINE [Suspect]
     Active Substance: CLOZAPINE
     Dosage: (DOSAGE TEXT: 50 MG/D) (DURATION: 4 DAYS)
     Route: 048
     Dates: start: 20240104, end: 20240108
  40. CLOZAPINE [Suspect]
     Active Substance: CLOZAPINE
     Dosage: (DOSAGE TEXT : 400 MG/D)
     Route: 048
     Dates: start: 20240514
  41. CLOZAPINE [Suspect]
     Active Substance: CLOZAPINE
     Dosage: (DOSAGE TEXT: 150 MG/D) (DURATION: 7 DAYS)
     Route: 048
     Dates: start: 20240112, end: 20240119
  42. CLOZAPINE [Suspect]
     Active Substance: CLOZAPINE
     Dosage: (DOSAGE TEXT: 100 MG/D) (DURATION: 4 DAYS)
     Route: 048
     Dates: start: 20240108, end: 20240112
  43. LIDOCAINE [Suspect]
     Active Substance: LIDOCAINE
     Indication: Pain
     Dosage: MEDICATED PLASTER, 1 DF (DOSAGE TEXT: 1 DAY OUT OF 3) (DURATION: 83 DAYS)
     Route: 048
     Dates: start: 20240221, end: 20240514
  44. LIDOCAINE [Suspect]
     Active Substance: LIDOCAINE
     Dosage: MEDICATED PLASTER, 1 DF (DOSAGE TEXT : 1 DAY OUT OF 3) (DURATION: 27 DAYS)
     Route: 048
     Dates: start: 20240621, end: 20240718
  45. MORPHINE SULFATE [Suspect]
     Active Substance: MORPHINE SULFATE
     Indication: Pain
     Dosage: ORODISPERSIBLE TABLET (DOSAGE TEXT : 5 MG IF NECESSARY)
     Route: 048
     Dates: start: 20240514
  46. MORPHINE SULFATE [Suspect]
     Active Substance: MORPHINE SULFATE
     Dosage: ORODISPERSIBLE TABLET (DOSAGE TEXT : 5 MG IF NECESSARY) (DURATION 3 DAYS)
     Route: 048
     Dates: start: 20240112, end: 20240115
  47. FERROUS SULFATE [Concomitant]
     Active Substance: FERROUS SULFATE
     Indication: Iron deficiency
     Dosage: (DOSAGE TEXT : 80 MG/D)
     Route: 048
     Dates: start: 20240119, end: 20240530
  48. FOLIC ACID [Concomitant]
     Active Substance: FOLIC ACID
     Indication: Folate deficiency
     Dosage: COMPRESSED (DOSAGE TEXT: 5 MG MG/D) (DURATION: 132 DAYS)
     Route: 048
     Dates: start: 20240119, end: 20240530
  49. VALIUM [Concomitant]
     Active Substance: DIAZEPAM
     Indication: Product used for unknown indication
     Dosage: (DOSAGE TEXT: 10 MG/D) (DURATION: 80 DAYS)
     Route: 048
     Dates: start: 20240123, end: 20240412
  50. VALIUM [Concomitant]
     Active Substance: DIAZEPAM
     Dosage: 10 MG IF NECESSARY (DURATION: 11 DAYS)
     Route: 048
     Dates: start: 20240104, end: 20240115
  51. ABILIFY [Concomitant]
     Active Substance: ARIPIPRAZOLE
     Indication: Pain
     Dosage: (DOSAGE TEXT : 5 MG/D)
     Route: 048
     Dates: start: 20240119, end: 20240119
  52. ABILIFY [Concomitant]
     Active Substance: ARIPIPRAZOLE
     Dosage: (DOSAGE TEXT : 400 MG/MONTH) (DURATION: 110 DAYS)
     Route: 048
     Dates: start: 20240126, end: 20240515
  53. OXYCONTIN [Concomitant]
     Active Substance: OXYCODONE HYDROCHLORIDE
     Indication: Pain
     Dosage: SUSTAINED-RELEASE FILM-COATED TABLET (DOSAGE TEXT: 20 MG/D) (DURATION: 112 DAYS)
     Route: 048
     Dates: start: 20240123, end: 20240514
  54. ACUPAN [Concomitant]
     Active Substance: NEFOPAM HYDROCHLORIDE
     Indication: Pain
     Dosage: 20 MG IF NECESSARY (DURATION: 16 DAYS)
     Route: 048
     Dates: start: 20240514, end: 20240530
  55. ACUPAN [Concomitant]
     Active Substance: NEFOPAM HYDROCHLORIDE
     Dosage: 80 MG/D (DURATION: 1 DAY)
     Route: 048
     Dates: start: 20240221, end: 20240311
  56. OXYCODONE HYDROCHLORIDE [Concomitant]
     Active Substance: OXYCODONE HYDROCHLORIDE
     Indication: Pain
     Dosage: (DOSAGE TEXT : 5 MG IF NECESSARY) (DURATION: 62 DAYS)
     Route: 048
     Dates: start: 20240313, end: 20240514
  57. OXYCODONE HYDROCHLORIDE [Concomitant]
     Active Substance: OXYCODONE HYDROCHLORIDE
     Dosage: (DOSAGE TEXT: 5 MG IF NECESSARY) (DURATION: 45 DAYS)
     Route: 048
     Dates: start: 20240115, end: 20240229

REACTIONS (1)
  - Hyperprolactinaemia [Recovering/Resolving]

NARRATIVE: CASE EVENT DATE: 20240701
